FAERS Safety Report 4744796-8 (Version None)
Quarter: 2005Q3

REPORT INFORMATION
  Report Type: 
  Country: None (occurrence: None)
  Receive Date: 20050812
  Receipt Date: 20050812
  Transmission Date: 20060218
  Serious: No
  Sender: FDA-Public Use
  Company Number: None

PATIENT
  Age: 20 Year
  Sex: Male

DRUGS (1)
  1. ROCEPHIN [Suspect]
     Dosage: 1GRAM ONE TIME DOSE  INTRAVENOUS
     Route: 042

REACTIONS (2)
  - PRURITUS [None]
  - URTICARIA [None]
